FAERS Safety Report 21491076 (Version 1)
Quarter: 2022Q4

REPORT INFORMATION
  Report Type: Spontaneous
  Country: None (occurrence: US)
  Receive Date: 20221021
  Receipt Date: 20221021
  Transmission Date: 20230113
  Serious: No
  Sender: FDA-Public Use
  Company Number: US-Vero Biotech-2134064

PATIENT
  Age: 7 Month
  Sex: Female

DRUGS (2)
  1. GENOSYL [Suspect]
     Active Substance: NITRIC OXIDE
     Indication: Product used for unknown indication
     Route: 055
     Dates: start: 20220820
  2. GENOSYL [Suspect]
     Active Substance: NITRIC OXIDE

REACTIONS (2)
  - Oxygen saturation decreased [Recovered/Resolved]
  - Device issue [None]

NARRATIVE: CASE EVENT DATE: 20220921
